FAERS Safety Report 7889774-5 (Version None)
Quarter: 2011Q4

REPORT INFORMATION
  Report Type: 
  Country: None (occurrence: None)
  Receive Date: 20111103
  Receipt Date: 20111101
  Transmission Date: 20120403
  Serious: Yes (Death)
  Sender: FDA-Public Use
  Company Number: US-PFIZER INC-2010081459

PATIENT
  Sex: Male

DRUGS (5)
  1. LANTUS [Concomitant]
     Dosage: UNK
  2. GLUCOTROL [Suspect]
     Indication: TYPE 2 DIABETES MELLITUS
  3. NEXIUM [Concomitant]
     Dosage: UNK
  4. NEURONTIN [Suspect]
     Dosage: 100 MG, 1X/DAY
     Dates: start: 20080701
  5. TOPROL-XL [Concomitant]
     Dosage: UNK

REACTIONS (1)
  - DEATH [None]
